FAERS Safety Report 5624589-X (Version None)
Quarter: 2008Q1

REPORT INFORMATION
  Report Type: 
  Country: None (occurrence: None)
  Receive Date: 20080213
  Receipt Date: 20080213
  Transmission Date: 20080703
  Serious: Yes (Disabling)
  Sender: FDA-Public Use
  Company Number: A0709241A

PATIENT

DRUGS (1)
  1. ALLI [Suspect]
     Route: 048

REACTIONS (4)
  - ABDOMINAL PAIN [None]
  - DYSSTASIA [None]
  - LOSS OF CONSCIOUSNESS [None]
  - MOBILITY DECREASED [None]
